FAERS Safety Report 21753374 (Version 1)
Quarter: 2022Q4

REPORT INFORMATION
  Report Type: Spontaneous
  Country: US (occurrence: None)
  Receive Date: 20221219
  Receipt Date: 20221219
  Transmission Date: 20230112
  Serious: Yes (Hospitalization)
  Sender: FDA-Public Use
  Company Number: None

PATIENT
  Age: 76 Year
  Sex: Female

DRUGS (23)
  1. AMBRISENTAN [Suspect]
     Active Substance: AMBRISENTAN
     Indication: Pulmonary hypertension
     Dosage: FREQUENCY : DAILY;?
     Route: 048
     Dates: start: 20141017
  2. SILDENAFIL [Concomitant]
     Active Substance: SILDENAFIL
  3. DILTIAZEM [Concomitant]
     Active Substance: DILTIAZEM
  4. ASPIRIN [Concomitant]
     Active Substance: ASPIRIN
  5. PANTOPRAZOLE [Concomitant]
     Active Substance: PANTOPRAZOLE
  6. MONTELUKAST [Concomitant]
     Active Substance: MONTELUKAST SODIUM
  7. ALLOPURINOL [Concomitant]
     Active Substance: ALLOPURINOL
  8. mupirocin top oint [Concomitant]
  9. PREDNISONE [Concomitant]
     Active Substance: PREDNISONE
  10. LEVOTHYROXINE [Concomitant]
     Active Substance: LEVOTHYROXINE
  11. ATORVASTATIN [Concomitant]
     Active Substance: ATORVASTATIN
  12. alvescp HFA [Concomitant]
  13. ASTELIN [Concomitant]
     Active Substance: AZELASTINE HYDROCHLORIDE
  14. calcium 600-D3 [Concomitant]
  15. plus mag-zinc [Concomitant]
  16. FERROUS GLUCONATE [Concomitant]
     Active Substance: FERROUS GLUCONATE
  17. VITAMIN B COMPLEX [Concomitant]
     Active Substance: CYANOCOBALAMIN\DEXPANTHENOL\NIACINAMIDE\PYRIDOXINE HYDROCHLORIDE\RIBOFLAVIN 5^-PHOSPHATE SODIUM\THIA
  18. ESTRACE [Concomitant]
     Active Substance: ESTRADIOL
  19. clobestasol to oint [Concomitant]
  20. ALBUTEROL [Concomitant]
     Active Substance: ALBUTEROL
  21. furosmide [Concomitant]
  22. POTASSIUM GLUCONATE [Concomitant]
     Active Substance: POTASSIUM GLUCONATE
  23. ASCORBIC ACID [Concomitant]
     Active Substance: ASCORBIC ACID

REACTIONS (4)
  - Respiratory failure [None]
  - Pneumonia [None]
  - Asthma prophylaxis [None]
  - Atrial fibrillation [None]

NARRATIVE: CASE EVENT DATE: 20221117
